FAERS Safety Report 13696907 (Version 1)
Quarter: 2017Q2

REPORT INFORMATION
  Report Type: Spontaneous
  Country: US (occurrence: US)
  Receive Date: 20170628
  Receipt Date: 20170628
  Transmission Date: 20170830
  Serious: No
  Sender: FDA-Public Use
  Company Number: US-ACCORD-050516

PATIENT
  Age: 71 Year
  Sex: Female
  Weight: 90.72 kg

DRUGS (2)
  1. AMLODIPINE [Interacting]
     Active Substance: AMLODIPINE BESYLATE
     Indication: PRODUCT USED FOR UNKNOWN INDICATION
  2. DOXAZOSIN [Suspect]
     Active Substance: DOXAZOSIN\DOXAZOSIN MESYLATE
     Indication: BLOOD PRESSURE MEASUREMENT
     Dosage: AT BED TIME
     Route: 048
     Dates: start: 20170331, end: 20170405

REACTIONS (3)
  - Dyspnoea [Unknown]
  - Drug interaction [Unknown]
  - Palpitations [Unknown]

NARRATIVE: CASE EVENT DATE: 20170401
